FAERS Safety Report 19990879 (Version 2)
Quarter: 2021Q4

REPORT INFORMATION
  Report Type: Spontaneous
  Country: NL (occurrence: None)
  Receive Date: 20211025
  Receipt Date: 20211103
  Transmission Date: 20220303
  Serious: Yes (Other)
  Sender: FDA-Public Use
  Company Number: NL-ROCHE-2935427

PATIENT
  Sex: Male

DRUGS (2)
  1. OBINUTUZUMAB [Suspect]
     Active Substance: OBINUTUZUMAB
     Indication: Follicular lymphoma
     Dosage: INFUSION SPEED 25 MG/HOUR?INFUSION SPEED OF 20MG/HOUR AND THE 100 MG COULD BE FINISHED THE SAME DAY
     Route: 042
     Dates: start: 20211012
  2. OBINUTUZUMAB [Suspect]
     Active Substance: OBINUTUZUMAB
     Dosage: HALF THE INFUSION SPEED
     Route: 042
     Dates: start: 20211013

REACTIONS (5)
  - Tremor [Unknown]
  - Tremor [Unknown]
  - Bronchospasm [Unknown]
  - Intercepted medication error [Unknown]
  - Product storage error [Unknown]

NARRATIVE: CASE EVENT DATE: 20211012
